FAERS Safety Report 4367445-X (Version None)
Quarter: 2004Q2

REPORT INFORMATION
  Report Type: 
  Country: None (occurrence: None)
  Receive Date: 20040528
  Receipt Date: 20040528
  Transmission Date: 20050107
  Serious: No
  Sender: FDA-Public Use
  Company Number: None

PATIENT
  Age: 49 Year
  Sex: Female
  Weight: 51 kg

DRUGS (1)
  1. VANCOMYCIN [Suspect]
     Indication: WOUND INFECTION
     Dosage: 1.25 G Q 12 HRS IV
     Route: 042
     Dates: start: 20040520, end: 20040602

REACTIONS (2)
  - DIZZINESS [None]
  - HEADACHE [None]
